FAERS Safety Report 9855320 (Version 1)
Quarter: 2014Q1

REPORT INFORMATION
  Report Type: Spontaneous
  Country: US (occurrence: US)
  Receive Date: 20140130
  Receipt Date: 20140130
  Transmission Date: 20141002
  Serious: Yes (Other)
  Sender: FDA-Public Use
  Company Number: US-JNJFOC-20140112128

PATIENT
  Sex: Female

DRUGS (1)
  1. KETOCONAZOLE 2% [Suspect]
     Indication: PSORIASIS
     Route: 062
     Dates: start: 201309

REACTIONS (5)
  - Type 1 diabetes mellitus [Not Recovered/Not Resolved]
  - Coeliac disease [Not Recovered/Not Resolved]
  - Therapeutic response unexpected [Unknown]
  - Off label use [Unknown]
  - Drug dose omission [Recovered/Resolved]
